FAERS Safety Report 4795102-4 (Version None)
Quarter: 2005Q4

REPORT INFORMATION
  Report Type: 
  Country: None (occurrence: None)
  Receive Date: 20051012
  Receipt Date: 20050930
  Transmission Date: 20060501
  Serious: Yes (Other)
  Sender: FDA-Public Use
  Company Number: GB-BRISTOL-MYERS SQUIBB COMPANY-13127220

PATIENT
  Age: 41 Year
  Sex: Male

DRUGS (6)
  1. STAVUDINE [Suspect]
     Indication: HIV INFECTION
  2. AMPRENAVIR [Suspect]
     Indication: HIV INFECTION
  3. SAQUINAVIR [Suspect]
     Indication: HIV INFECTION
  4. LAMIVUDINE [Suspect]
     Indication: HIV INFECTION
  5. CO-TRIMOXAZOLE [Concomitant]
  6. GANCICLOVIR [Concomitant]
     Route: 042

REACTIONS (5)
  - BRONCHIECTASIS [None]
  - CHEST X-RAY ABNORMAL [None]
  - IMMUNE RECONSTITUTION SYNDROME [None]
  - PNEUMONIA CYTOMEGALOVIRAL [None]
  - RESPIRATORY DISORDER [None]
